FAERS Safety Report 17505081 (Version 1)
Quarter: 2020Q1

REPORT INFORMATION
  Report Type: Spontaneous
  Country: US (occurrence: US)
  Receive Date: 20200305
  Receipt Date: 20200305
  Transmission Date: 20200409
  Serious: Yes (Life-Threatening, Other)
  Sender: FDA-Public Use
  Company Number: US-ASCEND THERAPEUTICS US, LLC-2081317

PATIENT
  Age: 57 Year
  Sex: Female

DRUGS (7)
  1. ACETYLSALICYCLIC ACID (ACETYLSALICYCLIC ACID), UNKNOWN?DRUG USE FOR UN [Concomitant]
  2. ESTRADIOL. [Suspect]
     Active Substance: ESTRADIOL
  3. SUMATRIPTAN. [Suspect]
     Active Substance: SUMATRIPTAN
  4. VENLAFAXINE [Concomitant]
     Active Substance: VENLAFAXINE HYDROCHLORIDE
  5. ATORVASTATIN (ATORVASTATIN), UNKNOWN?DRUG USE FOR UNKNOWN INDICATION [Concomitant]
  6. SUMATRIPTAN. [Suspect]
     Active Substance: SUMATRIPTAN
  7. ESTROGEL [Suspect]
     Active Substance: ESTRADIOL
     Indication: PRODUCT USED FOR UNKNOWN INDICATION

REACTIONS (2)
  - Drug interaction [Recovering/Resolving]
  - Colitis ischaemic [Recovering/Resolving]
